FAERS Safety Report 9737176 (Version 1)
Quarter: 2013Q4

REPORT INFORMATION
  Report Type: Spontaneous
  Country: US (occurrence: US)
  Receive Date: 20131206
  Receipt Date: 20131206
  Transmission Date: 20140711
  Serious: No
  Sender: FDA-Public Use
  Company Number: US-009507513-1310USA007032

PATIENT
  Age: 23 Year
  Sex: Female
  Weight: 90.7 kg

DRUGS (1)
  1. NEXPLANON [Suspect]
     Indication: CONTRACEPTION
     Dosage: UNK
     Route: 059
     Dates: start: 20130814

REACTIONS (4)
  - Device breakage [Unknown]
  - Dyspepsia [Recovering/Resolving]
  - Nausea [Recovering/Resolving]
  - Metrorrhagia [Unknown]
